FAERS Safety Report 22662150 (Version 2)
Quarter: 2024Q2

REPORT INFORMATION
  Report Type: Spontaneous
  Country: CA (occurrence: CA)
  Receive Date: 20230701
  Receipt Date: 20240411
  Transmission Date: 20240716
  Serious: Yes (Hospitalization, Other)
  Sender: FDA-Public Use
  Company Number: CA-AUROBINDO-AUR-APL-2023-014531

PATIENT
  Age: 43 Year
  Sex: Male

DRUGS (17)
  1. QUETIAPINE [Suspect]
     Active Substance: QUETIAPINE
     Indication: Bipolar disorder
     Dosage: UNK
     Route: 065
  2. QUETIAPINE [Suspect]
     Active Substance: QUETIAPINE
     Indication: Depression
  3. BENZTROPINE [Suspect]
     Active Substance: BENZTROPINE
     Indication: Bipolar disorder
     Dosage: UNK
     Route: 065
  4. BENZTROPINE [Suspect]
     Active Substance: BENZTROPINE
     Indication: Depression
  5. CLONAZEPAM [Suspect]
     Active Substance: CLONAZEPAM
     Indication: Bipolar disorder
     Dosage: UNK
     Route: 065
  6. CLONAZEPAM [Suspect]
     Active Substance: CLONAZEPAM
     Indication: Depression
  7. KETAMINE [Suspect]
     Active Substance: KETAMINE
     Indication: Product used for unknown indication
     Dosage: 0.5 MILLIGRAM/KILOGRAM (BODY WEIGHT OVER 4 WEEKS) (FIRST INFUSION WITHOUT MUSIC)
     Route: 041
  8. KETAMINE [Suspect]
     Active Substance: KETAMINE
     Dosage: 0.5 MILLIGRAM/KILOGRAM (BODY WEIGHT OVER 4 WEEKS) (ADMINISTERED WITH MUSIC)
     Route: 065
  9. FETZIMA [Suspect]
     Active Substance: LEVOMILNACIPRAN HYDROCHLORIDE
     Indication: Bipolar disorder
     Dosage: UNK
     Route: 065
  10. FETZIMA [Suspect]
     Active Substance: LEVOMILNACIPRAN HYDROCHLORIDE
     Indication: Depression
  11. REXULTI [Suspect]
     Active Substance: BREXPIPRAZOLE
     Indication: Bipolar disorder
     Dosage: UNK
     Route: 065
  12. REXULTI [Suspect]
     Active Substance: BREXPIPRAZOLE
     Indication: Depression
  13. TRINTELLIX [Suspect]
     Active Substance: VORTIOXETINE HYDROBROMIDE
     Indication: Bipolar disorder
     Dosage: UNK
     Route: 065
  14. TRINTELLIX [Suspect]
     Active Substance: VORTIOXETINE HYDROBROMIDE
     Indication: Depression
  15. ZOPICLONE [Suspect]
     Active Substance: ZOPICLONE
     Indication: Bipolar disorder
     Dosage: UNK
     Route: 065
  16. ZOPICLONE [Suspect]
     Active Substance: ZOPICLONE
     Indication: Depression
  17. KETAMINE [Concomitant]
     Active Substance: KETAMINE
     Indication: Product used for unknown indication
     Dosage: 05 MILLIGRAM/KILOGRAM
     Route: 065

REACTIONS (6)
  - Suicidal ideation [Unknown]
  - Off label use [Recovered/Resolved]
  - Dissociation [Recovered/Resolved]
  - Drug ineffective [Recovered/Resolved]
  - Product use in unapproved indication [Unknown]
  - Therapy non-responder [Unknown]
